FAERS Safety Report 6683592-1 (Version None)
Quarter: 2010Q2

REPORT INFORMATION
  Report Type: 
  Country: None (occurrence: None)
  Receive Date: 20100415
  Receipt Date: 20100407
  Transmission Date: 20101027
  Serious: Yes (Death, Hospitalization)
  Sender: FDA-Public Use
  Company Number: BR-JNJFOC-20100304554

PATIENT
  Age: 83 Year
  Sex: Male
  Weight: 86 kg

DRUGS (5)
  1. REMICADE [Suspect]
     Indication: PSORIASIS
     Dosage: 8 INFUSIONS
     Route: 042
  2. REMICADE [Suspect]
     Route: 042
  3. GLIBENCLAMIDE [Concomitant]
     Route: 048
  4. METFORMIN HCL [Concomitant]
     Route: 048
  5. METHOTREXATE [Concomitant]
     Route: 048

REACTIONS (6)
  - ATAXIA [None]
  - DEATH [None]
  - MUSCULAR WEAKNESS [None]
  - MYALGIA [None]
  - PNEUMONIA [None]
  - RESPIRATORY FAILURE [None]
